FAERS Safety Report 4576286-X (Version None)
Quarter: 2005Q1

REPORT INFORMATION
  Report Type: 
  Country: None (occurrence: None)
  Receive Date: 20050207
  Receipt Date: 20050125
  Transmission Date: 20050727
  Serious: Yes (Hospitalization, Other)
  Sender: FDA-Public Use
  Company Number: 2004097805

PATIENT
  Age: 47 Year
  Sex: Female

DRUGS (6)
  1. CELEBREX [Suspect]
     Indication: ILL-DEFINED DISORDER
     Dosage: ORAL
     Route: 048
  2. INTERFERON BETA              (INTERFERON BETA) [Suspect]
     Indication: MULTIPLE SCLEROSIS RELAPSE
     Dosage: (30 MCG, 1 WK), INTRAMUSCULAR
     Route: 030
     Dates: start: 20040429
  3. PRAMIPEXOLE               (PRAMIPEXOLE) [Concomitant]
  4. OMEPRAZOLE [Concomitant]
  5. SERTRALINE        (SERTALINE) [Concomitant]
  6. ALL OTHER THERAPEUTIC PRODUCTS [Concomitant]

REACTIONS (8)
  - ANAEMIA [None]
  - BACK PAIN [None]
  - CARDIAC FAILURE CONGESTIVE [None]
  - CARDIOMEGALY [None]
  - HYPERVENTILATION [None]
  - NECK PAIN [None]
  - PULMONARY OEDEMA [None]
  - ROAD TRAFFIC ACCIDENT [None]
